FAERS Safety Report 24155698 (Version 1)
Quarter: 2024Q3

REPORT INFORMATION
  Report Type: Spontaneous
  Country: TR (occurrence: TR)
  Receive Date: 20240731
  Receipt Date: 20240731
  Transmission Date: 20241017
  Serious: Yes (Other)
  Sender: DAIICHI
  Company Number: US-DSJP-DSU-2024-135980

PATIENT
  Sex: Female

DRUGS (1)
  1. ENHERTU [Suspect]
     Active Substance: FAM-TRASTUZUMAB DERUXTECAN-NXKI
     Indication: Lung carcinoma cell type unspecified stage IV
     Dosage: 300 MG, ONCE EVERY 3 WK
     Route: 042
     Dates: start: 2024, end: 2024

REACTIONS (8)
  - Apallic syndrome [Unknown]
  - Nervous system disorder [Unknown]
  - Memory impairment [Unknown]
  - Aggression [Unknown]
  - Aggression [Unknown]
  - Hallucination [Unknown]
  - Hyperventilation [Unknown]
  - Amnesia [Unknown]

NARRATIVE: CASE EVENT DATE: 20240101
